FAERS Safety Report 6307973-0 (Version None)
Quarter: 2009Q3

REPORT INFORMATION
  Report Type: 
  Country: None (occurrence: None)
  Receive Date: 20090813
  Receipt Date: 20090810
  Transmission Date: 20100115
  Serious: No
  Sender: FDA-Public Use
  Company Number: US-B.I. PHARMACEUTICALS,INC./RIDGEFIELD-2009-BP-09425BP

PATIENT
  Age: 84 Year
  Sex: Female

DRUGS (6)
  1. MICARDIS [Suspect]
     Indication: HYPERTENSION
     Dosage: 40 MG
     Route: 048
     Dates: start: 20090701
  2. MICARDIS [Suspect]
     Route: 048
     Dates: start: 20090701, end: 20090701
  3. MICARDIS [Suspect]
     Dosage: 40 MG
     Route: 048
     Dates: start: 20070101, end: 20090701
  4. VERAPAMIL [Concomitant]
     Indication: HYPERTENSION
     Dates: start: 20070101
  5. PLAVIX [Concomitant]
     Indication: ANTICOAGULANT THERAPY
     Dates: start: 20070101
  6. LIPITOR [Concomitant]
     Indication: BLOOD CHOLESTEROL INCREASED
     Dates: start: 20070101

REACTIONS (2)
  - BLOOD PRESSURE ABNORMAL [None]
  - FATIGUE [None]
